FAERS Safety Report 21953299 (Version 2)
Quarter: 2023Q1

REPORT INFORMATION
  Report Type: Report from Study
  Country: FR (occurrence: FR)
  Receive Date: 20230204
  Receipt Date: 20230207
  Transmission Date: 20230417
  Serious: Yes (Other)
  Sender: FDA-Public Use
  Company Number: FR-ABBVIE-22K-056-4479551-00

PATIENT
  Age: 74 Year
  Sex: Male
  Weight: 81 kg

DRUGS (12)
  1. VENETOCLAX [Suspect]
     Active Substance: VENETOCLAX
     Indication: Chronic lymphocytic leukaemia
     Dosage: 50 MILLIGRAM
     Route: 048
     Dates: start: 20220608, end: 20220615
  2. VENETOCLAX [Suspect]
     Active Substance: VENETOCLAX
     Indication: Chronic lymphocytic leukaemia
     Dosage: 100 MILLIGRAM
     Route: 048
     Dates: start: 20220616, end: 20220625
  3. VENETOCLAX [Suspect]
     Active Substance: VENETOCLAX
     Indication: Chronic lymphocytic leukaemia
     Dosage: 200 MILLIGRAM
     Route: 048
     Dates: start: 20220626, end: 20220702
  4. VENETOCLAX [Suspect]
     Active Substance: VENETOCLAX
     Indication: Chronic lymphocytic leukaemia
     Dosage: 300 MILLIGRAM/CESSATION DATE  2022
     Route: 048
     Dates: start: 20220715
  5. VENETOCLAX [Suspect]
     Active Substance: VENETOCLAX
     Indication: Chronic lymphocytic leukaemia
     Dosage: 200 MILLIGRAM
     Route: 048
     Dates: start: 20220906, end: 20221107
  6. SODIUM POLYSTYRENE SULFONATE [Concomitant]
     Active Substance: SODIUM POLYSTYRENE SULFONATE
     Indication: Hypouricaemia
     Dates: start: 20220609, end: 20220610
  7. RITUXIMAB [Concomitant]
     Active Substance: RITUXIMAB
     Indication: Immune system disorder
     Dates: start: 20220714, end: 20220715
  8. XARELTO [Concomitant]
     Active Substance: RIVAROXABAN
     Indication: Anticoagulant therapy
     Dates: start: 20220614
  9. RITUXAN [Concomitant]
     Active Substance: RITUXIMAB
     Indication: Immune system disorder
     Dates: start: 20220906, end: 20220906
  10. RITUXAN [Concomitant]
     Active Substance: RITUXIMAB
     Indication: Immune system disorder
     Dates: start: 20220809, end: 20220809
  11. RITUXAN [Concomitant]
     Active Substance: RITUXIMAB
     Indication: Immune system disorder
     Dates: start: 20220714, end: 20220714
  12. TAMSULOSIN HYDROCHLORIDE [Concomitant]
     Active Substance: TAMSULOSIN HYDROCHLORIDE
     Indication: Product used for unknown indication
     Dates: start: 20220614

REACTIONS (2)
  - Femoral neck fracture [Recovered/Resolved]
  - Neutropenia [Recovered/Resolved]

NARRATIVE: CASE EVENT DATE: 20220708
